FAERS Safety Report 19938088 (Version 1)
Quarter: 2021Q4

REPORT INFORMATION
  Report Type: Spontaneous
  Country: US (occurrence: US)
  Receive Date: 20211011
  Receipt Date: 20211011
  Transmission Date: 20220303
  Serious: No
  Sender: FDA-Public Use
  Company Number: US-ROCHE-2813170

PATIENT
  Sex: Male

DRUGS (1)
  1. ZELBORAF [Suspect]
     Active Substance: VEMURAFENIB
     Indication: Malignant melanoma
     Dosage: ONGOING: YES
     Route: 048
     Dates: start: 202103

REACTIONS (5)
  - Headache [Not Recovered/Not Resolved]
  - Chills [Unknown]
  - Joint stiffness [Unknown]
  - Rash [Not Recovered/Not Resolved]
  - Off label use [Unknown]
